FAERS Safety Report 5510365-5 (Version None)
Quarter: 2007Q4

REPORT INFORMATION
  Report Type: 
  Country: None (occurrence: None)
  Receive Date: 20071108
  Receipt Date: 20071029
  Transmission Date: 20080405
  Serious: Yes (Hospitalization)
  Sender: FDA-Public Use
  Company Number: US-AMGEN-KDL250453

PATIENT
  Sex: Male

DRUGS (7)
  1. PROCRIT [Suspect]
     Indication: RENAL FAILURE CHRONIC
     Route: 065
     Dates: start: 20071010
  2. LITHIUM CARBONATE [Concomitant]
  3. LEVOTHYROXINE SODIUM [Concomitant]
  4. ALLOPURINOL [Concomitant]
  5. ATENOLOL [Concomitant]
  6. CALCITRIOL [Concomitant]
     Dates: start: 20071001
  7. VYTORIN [Concomitant]
     Dates: start: 20040101

REACTIONS (2)
  - ANAEMIA [None]
  - DIARRHOEA HAEMORRHAGIC [None]
